FAERS Safety Report 5312686-8 (Version None)
Quarter: 2007Q2

REPORT INFORMATION
  Report Type: 
  Country: None (occurrence: None)
  Receive Date: 20070430
  Receipt Date: 20070207
  Transmission Date: 20071010
  Serious: Yes (Other)
  Sender: FDA-Public Use
  Company Number: 2007UW02591

PATIENT
  Sex: Male

DRUGS (2)
  1. CRESTOR [Suspect]
     Route: 048
  2. HIV MEDICATIONS [Interacting]

REACTIONS (3)
  - DRUG INTERACTION [None]
  - RENAL FAILURE [None]
  - RENAL TUBULAR NECROSIS [None]
